FAERS Safety Report 9564757 (Version 1)
Quarter: 2013Q3

REPORT INFORMATION
  Report Type: Report from Study
  Country: CA (occurrence: CA)
  Receive Date: 20130930
  Receipt Date: 20130930
  Transmission Date: 20140515
  Serious: Yes (Other)
  Sender: FDA-Public Use
  Company Number: CA-JNJFOC-20130912582

PATIENT
  Age: 66 Year
  Sex: Male
  Weight: 73.4 kg

DRUGS (7)
  1. REMICADE [Suspect]
     Indication: CROHN^S DISEASE
     Route: 042
     Dates: start: 2005
  2. IMODIUM [Concomitant]
     Route: 065
  3. VITAMIN C [Concomitant]
     Route: 065
  4. IRON [Concomitant]
     Route: 065
  5. MULTIVITAMINS [Concomitant]
     Route: 065
  6. VITAMIN D [Concomitant]
     Route: 065
  7. COLESTIPOL HCL [Concomitant]
     Route: 065

REACTIONS (1)
  - Nephrolithiasis [Not Recovered/Not Resolved]
